FAERS Safety Report 24361739 (Version 1)
Quarter: 2024Q3

REPORT INFORMATION
  Report Type: Spontaneous
  Country: US (occurrence: None)
  Receive Date: 20240924
  Receipt Date: 20240924
  Transmission Date: 20241017
  Serious: No
  Sender: Public
  Company Number: None

PATIENT
  Age: 85 Year
  Sex: Male

DRUGS (2)
  1. SILDENAFIL CITRATE [Suspect]
     Active Substance: SILDENAFIL CITRATE
     Indication: Ischaemic cardiomyopathy
     Dosage: FREQUENCY : 3 TIMES A DAY;?
     Route: 048
     Dates: start: 201705
  2. SILDENAFIL CITRATE [Suspect]
     Active Substance: SILDENAFIL CITRATE
     Indication: Pulmonary arterial hypertension

REACTIONS (2)
  - Cardiac assistance device user [None]
  - Complication associated with device [None]

NARRATIVE: CASE EVENT DATE: 20240909
